FAERS Safety Report 17407613 (Version 2)
Quarter: 2020Q1

REPORT INFORMATION
  Report Type: Spontaneous
  Country: DE (occurrence: DE)
  Receive Date: 20200212
  Receipt Date: 20200218
  Transmission Date: 20200409
  Serious: Yes (Hospitalization, Other)
  Sender: FDA-Public Use
  Company Number: DE-AMGEN-DEUSP2020021554

PATIENT
  Age: 15 Year
  Sex: Female
  Weight: 59 kg

DRUGS (1)
  1. ADALIMUMAB [Suspect]
     Active Substance: ADALIMUMAB
     Indication: CROHN^S DISEASE
     Dosage: 40 MILLIGRAM, Q2WK
     Route: 058
     Dates: start: 20190814

REACTIONS (9)
  - Hypoacusis [Unknown]
  - Asthenia [Unknown]
  - Dehydration [Recovered/Resolved]
  - Cardiovascular disorder [Recovered/Resolved]
  - Tremor [Recovered/Resolved]
  - Rash macular [Unknown]
  - Vomiting [Recovered/Resolved]
  - Syncope [Unknown]
  - Hypotension [Recovered/Resolved]

NARRATIVE: CASE EVENT DATE: 20200127
